FAERS Safety Report 18521633 (Version 7)
Quarter: 2021Q1

REPORT INFORMATION
  Report Type: Report from Study
  Country: CA (occurrence: CA)
  Receive Date: 20201119
  Receipt Date: 20210223
  Transmission Date: 20210419
  Serious: Yes (Disabling, Other)
  Sender: FDA-Public Use
  Company Number: CA-ASTRAZENECA-2020SF47619

PATIENT
  Sex: Male

DRUGS (19)
  1. TERAZOSIN [Concomitant]
     Active Substance: TERAZOSIN HYDROCHLORIDE
     Indication: HYPERTENSION
  2. NOVORAPID [Concomitant]
     Active Substance: INSULIN ASPART
     Indication: DIABETES MELLITUS
  3. CALQUENCE [Suspect]
     Active Substance: ACALABRUTINIB
     Indication: CHRONIC LYMPHOCYTIC LEUKAEMIA
     Route: 048
     Dates: start: 20210201
  4. LEVOTHYROXINE. [Concomitant]
     Active Substance: LEVOTHYROXINE
     Indication: HYPOTHYROIDISM
  5. ROSUVASTATIN. [Suspect]
     Active Substance: ROSUVASTATIN
     Indication: DYSLIPIDAEMIA
     Route: 048
  6. AMLODIPINE [Concomitant]
     Active Substance: AMLODIPINE BESYLATE
     Indication: HYPERTENSION
  7. LANTUS [Concomitant]
     Active Substance: INSULIN GLARGINE
     Indication: DIABETES MELLITUS
  8. TYLENOL [Concomitant]
     Active Substance: ACETAMINOPHEN
  9. CALQUENCE [Suspect]
     Active Substance: ACALABRUTINIB
     Indication: CHRONIC LYMPHOCYTIC LEUKAEMIA
     Dosage: TWO TIMES A DAY
     Route: 048
     Dates: start: 20201019
  10. EZETIMIBE. [Concomitant]
     Active Substance: EZETIMIBE
     Indication: DYSLIPIDAEMIA
  11. PERINDOPRIL [Concomitant]
     Active Substance: PERINDOPRIL
     Indication: HYPERTENSION
  12. CALQUENCE [Suspect]
     Active Substance: ACALABRUTINIB
     Indication: CHRONIC LYMPHOCYTIC LEUKAEMIA
     Route: 048
     Dates: start: 20201104
  13. CALQUENCE [Suspect]
     Active Substance: ACALABRUTINIB
     Indication: CHRONIC LYMPHOCYTIC LEUKAEMIA
     Route: 048
  14. VITAMIN D3 [Concomitant]
     Active Substance: CHOLECALCIFEROL
  15. APIXABAN [Concomitant]
     Active Substance: APIXABAN
     Indication: ANTIPLATELET THERAPY
  16. LUTEIN [Concomitant]
     Active Substance: LUTEIN
  17. IMBRUVICA [Concomitant]
     Active Substance: IBRUTINIB
  18. CHLORTHALIDONE. [Concomitant]
     Active Substance: CHLORTHALIDONE
     Indication: HYPERTENSION
  19. VITAMIN B12 [Concomitant]
     Active Substance: CYANOCOBALAMIN

REACTIONS (12)
  - Muscle spasms [Recovering/Resolving]
  - Poor quality sleep [Unknown]
  - Nausea [Recovering/Resolving]
  - Pain [Unknown]
  - Malignant neoplasm progression [Not Recovered/Not Resolved]
  - Abdominal pain upper [Unknown]
  - Neck pain [Not Recovered/Not Resolved]
  - Haemoglobin decreased [Unknown]
  - Migraine [Recovered/Resolved]
  - Blood glucose fluctuation [Unknown]
  - Myalgia [Unknown]
  - Headache [Not Recovered/Not Resolved]
